FAERS Safety Report 5923293-8 (Version None)
Quarter: 2008Q4

REPORT INFORMATION
  Report Type: 
  Country: None (occurrence: None)
  Receive Date: 20081020
  Receipt Date: 20081015
  Transmission Date: 20090506
  Serious: Yes (Other)
  Sender: FDA-Public Use
  Company Number: US-BAYER-200836039NA

PATIENT
  Age: 46 Year
  Sex: Female

DRUGS (1)
  1. YAZ [Suspect]
     Indication: MENOPAUSE
     Route: 048
     Dates: start: 20080901

REACTIONS (1)
  - DEEP VEIN THROMBOSIS [None]
